FAERS Safety Report 6405850-8 (Version None)
Quarter: 2009Q4

REPORT INFORMATION
  Report Type: 
  Country: None (occurrence: None)
  Receive Date: 20091019
  Receipt Date: 20091015
  Transmission Date: 20100525
  Serious: Yes (Death, Hospitalization, Other)
  Sender: FDA-Public Use
  Company Number: US-BRISTOL-MYERS SQUIBB COMPANY-14803993

PATIENT
  Age: 39 Year
  Sex: Male
  Weight: 75 kg

DRUGS (7)
  1. ABILIFY [Suspect]
     Indication: DEPRESSION
     Dosage: 1 DF=20MG-30MG QHS
     Route: 048
     Dates: start: 20050113
  2. ABILIFY [Suspect]
     Indication: BIPOLAR DISORDER
     Dosage: 1 DF=20MG-30MG QHS
     Route: 048
     Dates: start: 20050113
  3. ABILIFY [Suspect]
     Indication: SCHIZOAFFECTIVE DISORDER
     Dosage: 1 DF=20MG-30MG QHS
     Route: 048
     Dates: start: 20050113
  4. ZOLOFT [Suspect]
     Dosage: 200MG QHS
  5. SEROQUEL [Suspect]
     Dosage: INCREASED AT TIMES TO 200MG OR 400MG 1 DF = 50-100MG
     Route: 048
  6. TYLENOL [Concomitant]
  7. ZYPREXA [Concomitant]

REACTIONS (2)
  - DIABETIC KETOACIDOSIS [None]
  - WEIGHT INCREASED [None]
